FAERS Safety Report 18900615 (Version 1)
Quarter: 2021Q1

REPORT INFORMATION
  Report Type: Spontaneous
  Country: DE (occurrence: DE)
  Receive Date: 20210217
  Receipt Date: 20210217
  Transmission Date: 20210420
  Serious: No
  Sender: FDA-Public Use
  Company Number: DE-ALKEM LABORATORIES LIMITED-DE-ALKEM-2020-08280

PATIENT
  Age: 62 Year
  Sex: Female
  Weight: 62 kg

DRUGS (22)
  1. PREGABALIN. [Suspect]
     Active Substance: PREGABALIN
     Dosage: 300 MG, BID
     Route: 048
     Dates: start: 201005
  2. AMITRIPTYLINE [Concomitant]
     Active Substance: AMITRIPTYLINE
     Dosage: 50 MILLIGRAM, QD
     Route: 048
     Dates: start: 201407
  3. AMITRIPTYLINE [Concomitant]
     Active Substance: AMITRIPTYLINE
     Dosage: 50 MILLIGRAM, QD
     Route: 048
     Dates: start: 201508
  4. CAPSAICIN. [Concomitant]
     Active Substance: CAPSAICIN
     Dosage: 8 PERCENT (1 PATCH 30 MINUTES)
     Route: 065
  5. PREGABALIN. [Suspect]
     Active Substance: PREGABALIN
     Dosage: 300 MG, BID
     Route: 048
     Dates: start: 201404
  6. AMITRIPTYLINE [Concomitant]
     Active Substance: AMITRIPTYLINE
     Indication: DEPRESSION
     Dosage: 75 MILLIGRAM, QD
     Route: 048
     Dates: start: 2010
  7. AMITRIPTYLINE [Concomitant]
     Active Substance: AMITRIPTYLINE
     Indication: NEURALGIA
     Dosage: 75 MILLIGRAM, QD
     Route: 048
     Dates: start: 201404, end: 2014
  8. AMITRIPTYLINE [Concomitant]
     Active Substance: AMITRIPTYLINE
     Dosage: 50 MILLIGRAM, QD
     Route: 048
     Dates: start: 201409
  9. CAPSAICIN. [Concomitant]
     Active Substance: CAPSAICIN
     Dosage: 1 DOSAGE FORM
     Route: 065
     Dates: start: 201508, end: 202002
  10. TAPENTADOL [Concomitant]
     Active Substance: TAPENTADOL
     Dosage: 150 MG, QD
     Route: 048
     Dates: start: 201409
  11. PREGABALIN. [Suspect]
     Active Substance: PREGABALIN
     Dosage: 150 MG, BID
     Route: 048
     Dates: start: 201409
  12. PREGABALIN. [Suspect]
     Active Substance: PREGABALIN
     Dosage: 300 MILLIGRAM, QD (150 MG, BID)
     Route: 048
     Dates: start: 201508
  13. PREGABALIN. [Suspect]
     Active Substance: PREGABALIN
     Dosage: 300 MG, QD
     Route: 048
     Dates: start: 2010
  14. TAPENTADOL [Concomitant]
     Active Substance: TAPENTADOL
     Indication: NEURALGIA
     Dosage: 100 MILLIGRAM, QD
     Route: 048
     Dates: start: 201405, end: 201405
  15. TAPENTADOL [Concomitant]
     Active Substance: TAPENTADOL
     Dosage: 200 MILLIGRAM, QD
     Route: 048
     Dates: start: 201405, end: 201405
  16. TAPENTADOL [Concomitant]
     Active Substance: TAPENTADOL
     Dosage: 150 MG, BID
     Route: 048
     Dates: start: 201508
  17. PREGABALIN. [Suspect]
     Active Substance: PREGABALIN
     Indication: NEURALGIA
     Dosage: 150 MG, QD
     Route: 048
     Dates: start: 2010
  18. PREGABALIN. [Suspect]
     Active Substance: PREGABALIN
     Dosage: 150 MG, BID
     Route: 048
     Dates: start: 201407
  19. AMITRIPTYLINE [Concomitant]
     Active Substance: AMITRIPTYLINE
     Dosage: 75 MILLIGRAM, QD
     Route: 048
     Dates: start: 201405, end: 2014
  20. CAPSAICIN. [Concomitant]
     Active Substance: CAPSAICIN
     Indication: NEURALGIA
     Dosage: 8 UNK (1?2 PATCHES, 30 MIN EVERY THIRD MONTH)
     Route: 065
  21. TAPENTADOL [Concomitant]
     Active Substance: TAPENTADOL
     Dosage: 150 MG, BID
     Route: 048
     Dates: start: 201407
  22. DULOXETINE. [Concomitant]
     Active Substance: DULOXETINE
     Indication: PAIN
     Dosage: 30 MG, QD
     Route: 065
     Dates: start: 201404

REACTIONS (6)
  - Poor quality sleep [Recovered/Resolved]
  - Anxiety [Recovered/Resolved]
  - Depression [Recovered/Resolved]
  - Quality of life decreased [Recovered/Resolved]
  - Therapeutic product effect incomplete [Unknown]
  - Mobility decreased [Recovered/Resolved]

NARRATIVE: CASE EVENT DATE: 201404
